FAERS Safety Report 13626452 (Version 1)
Quarter: 2017Q2

REPORT INFORMATION
  Report Type: Spontaneous
  Country: GB (occurrence: GB)
  Receive Date: 20170607
  Receipt Date: 20170607
  Transmission Date: 20170830
  Serious: Yes (Other)
  Sender: FDA-Public Use
  Company Number: GB-TEVA-773765ACC

PATIENT
  Age: 69 Year
  Sex: Female
  Weight: 55 kg

DRUGS (5)
  1. PARACETAMOL [Concomitant]
     Active Substance: ACETAMINOPHEN
     Indication: PAIN
     Dosage: TAKE 1 OR 2 4 TIMES/DAY
     Dates: start: 20160921, end: 20170426
  2. CLINITAS [Concomitant]
     Dates: start: 20160413
  3. HYPROMELLOSE [Concomitant]
     Active Substance: HYPROMELLOSES
     Dosage: IN THE AFFECTED EYE/S
     Route: 050
     Dates: start: 20150928
  4. M AND A PHARMACHEM PARACETAMOL [Concomitant]
     Indication: PAIN
     Dosage: TAKE 1 OR 2 4 TIMES/DAY
     Dates: start: 20170426
  5. LOSARTAN. [Suspect]
     Active Substance: LOSARTAN
     Dates: start: 20170517

REACTIONS (1)
  - Memory impairment [Unknown]

NARRATIVE: CASE EVENT DATE: 20170517
